FAERS Safety Report 5204415-3 (Version None)
Quarter: 2007Q1

REPORT INFORMATION
  Report Type: 
  Country: None (occurrence: None)
  Receive Date: 20070110
  Receipt Date: 20060320
  Transmission Date: 20070707
  Serious: No
  Sender: FDA-Public Use
  Company Number: US-BRISTOL-MYERS SQUIBB COMPANY-13320536

PATIENT
  Age: 40 Year
  Sex: Female
  Weight: 50 kg

DRUGS (4)
  1. ABILIFY [Suspect]
     Indication: POST-TRAUMATIC STRESS DISORDER
     Dates: start: 20051001
  2. WELLBUTRIN [Concomitant]
  3. KLONOPIN [Concomitant]
  4. LEXAPRO [Concomitant]

REACTIONS (1)
  - HYPOKALAEMIA [None]
